FAERS Safety Report 4637407-3 (Version None)
Quarter: 2005Q2

REPORT INFORMATION
  Report Type: 
  Country: None (occurrence: None)
  Receive Date: 20050418
  Receipt Date: 20040922
  Transmission Date: 20051028
  Serious: No
  Sender: FDA-Public Use
  Company Number: US-BRISTOL-MYERS SQUIBB COMPANY-12709358

PATIENT
  Sex: Female

DRUGS (1)
  1. HYDREA [Suspect]
     Indication: PLATELET COUNT INCREASED

REACTIONS (3)
  - GASTROOESOPHAGEAL REFLUX DISEASE [None]
  - OESOPHAGITIS [None]
  - TONGUE ULCERATION [None]
